FAERS Safety Report 23512334 (Version 4)
Quarter: 2024Q1

REPORT INFORMATION
  Report Type: Spontaneous
  Country: ES (occurrence: ES)
  Receive Date: 20240212
  Receipt Date: 20240301
  Transmission Date: 20240409
  Serious: Yes (Death, Hospitalization)
  Sender: FDA-Public Use
  Company Number: ES-CLINIGEN-ES-CLI-2023-042685

PATIENT
  Age: 68 Year
  Sex: Female
  Weight: 72 kg

DRUGS (4)
  1. CYCLOPHOSPHAMIDE [Suspect]
     Active Substance: CYCLOPHOSPHAMIDE
     Indication: Malignant melanoma
     Dosage: UNK
     Route: 042
  2. FLUDARABINE [Suspect]
     Active Substance: FLUDARABINE PHOSPHATE
     Indication: Malignant melanoma
     Dosage: UNK
     Route: 042
  3. PEMBROLIZUMAB [Suspect]
     Active Substance: PEMBROLIZUMAB
     Indication: Malignant melanoma
     Dosage: UNK
     Route: 065
  4. PROLEUKIN [Suspect]
     Active Substance: ALDESLEUKIN
     Indication: Malignant melanoma
     Dosage: UNK
     Route: 042

REACTIONS (2)
  - Leukoencephalopathy [Fatal]
  - Encephalopathy [Recovering/Resolving]

NARRATIVE: CASE EVENT DATE: 20231026
